FAERS Safety Report 15988010 (Version 3)
Quarter: 2019Q2

REPORT INFORMATION
  Report Type: Spontaneous
  Country: DE (occurrence: DE)
  Receive Date: 20190220
  Receipt Date: 20190430
  Transmission Date: 20190711
  Serious: Yes (Hospitalization, Other)
  Sender: FDA-Public Use
  Company Number: DE-BRISTOL-MYERS SQUIBB COMPANY-BMS-2019-017745

PATIENT
  Age: 89 Year
  Sex: Female

DRUGS (10)
  1. ELIQUIS [Suspect]
     Active Substance: APIXABAN
     Indication: CEREBROVASCULAR ACCIDENT PROPHYLAXIS
     Dosage: 2.5 MG, BID
     Route: 048
     Dates: start: 20190212
  2. RAMIPRIL. [Concomitant]
     Active Substance: RAMIPRIL
     Indication: HYPOTENSION
     Dosage: 5 MG, QD
     Route: 048
     Dates: start: 20180101
  3. VERAPAMIL [Concomitant]
     Active Substance: VERAPAMIL HYDROCHLORIDE
     Indication: PRODUCT USED FOR UNKNOWN INDICATION
     Dosage: 240 MG, QD
     Route: 065
  4. METAMIZOL                          /06276701/ [Concomitant]
     Active Substance: METAMIZOLE
     Indication: PAIN
     Dosage: 2250 MG, QD
     Route: 048
     Dates: start: 20190205
  5. TILIDIN [Concomitant]
     Active Substance: NALOXONE HYDROCHLORIDE\TILIDINE HYDROCHLORIDE
     Indication: PAIN
     Dosage: 100MG/8MG
     Route: 048
     Dates: start: 20190212
  6. ENOXAPARIN [Concomitant]
     Active Substance: ENOXAPARIN
     Indication: THROMBOSIS PROPHYLAXIS
     Dosage: 0.4 ML, QD
     Route: 058
     Dates: start: 20190208, end: 20190210
  7. SITAGLIPTIN [Concomitant]
     Active Substance: SITAGLIPTIN
     Indication: DIABETES MELLITUS
     Dosage: 50 MILLIGRAM
     Route: 048
     Dates: start: 20190213
  8. PANTAZOLE [Concomitant]
     Active Substance: PANTOPRAZOLE SODIUM
     Indication: UPPER GASTROINTESTINAL HAEMORRHAGE
     Dosage: 40 MG, QD
     Route: 048
     Dates: start: 20190209
  9. RAMIPRIL. [Concomitant]
     Active Substance: RAMIPRIL
     Indication: HYPERTENSION
     Dosage: 10 MILLIGRAM
     Route: 048
     Dates: start: 20190212
  10. CLINDAMYCIN. [Concomitant]
     Active Substance: CLINDAMYCIN
     Indication: PARONYCHIA
     Dosage: 1800 MG, QD
     Route: 042
     Dates: start: 20190202, end: 20190214

REACTIONS (2)
  - Fall [Unknown]
  - Lumbar vertebral fracture [Recovered/Resolved]

NARRATIVE: CASE EVENT DATE: 20190214
